FAERS Safety Report 6931504-5 (Version None)
Quarter: 2010Q3

REPORT INFORMATION
  Report Type: 
  Country: None (occurrence: None)
  Receive Date: 20100819
  Receipt Date: 20100809
  Transmission Date: 20110219
  Serious: Yes (Hospitalization)
  Sender: FDA-Public Use
  Company Number: BE-KINGPHARMUSA00001-K201001013

PATIENT
  Age: 13 Year
  Sex: Male
  Weight: 61 kg

DRUGS (12)
  1. SEPTRA [Suspect]
     Dosage: 800 MG, QD
     Route: 048
     Dates: start: 20080603
  2. OMEPRAZOLE [Suspect]
     Indication: ORAL DISORDER
     Dosage: 20 MG, QD
     Route: 048
     Dates: start: 20080307
  3. OMEPRAZOLE [Suspect]
     Indication: OESOPHAGEAL DISORDER
     Dosage: 20 MG, QD
     Dates: start: 20080620, end: 20080701
  4. METHOTREXATE [Suspect]
     Indication: ACUTE LYMPHOCYTIC LEUKAEMIA
     Dosage: 12 MG, SINGLE
     Route: 037
     Dates: start: 20080716, end: 20080716
  5. CYTARABINE [Suspect]
     Indication: ACUTE LYMPHOCYTIC LEUKAEMIA
     Dosage: 30 MG, SINGLE
     Route: 037
     Dates: start: 20080716, end: 20080716
  6. CYTARABINE [Suspect]
     Dosage: 75 MG/M2, QD
     Route: 042
     Dates: start: 20080716, end: 20080719
  7. CYTARABINE [Suspect]
     Dosage: 75 MG/M2, QD
     Route: 042
     Dates: start: 20080723, end: 20080726
  8. CYCLOPHOSPHAMIDE [Suspect]
     Indication: ACUTE LYMPHOCYTIC LEUKAEMIA
     Dosage: 1000 MG/M2, SINGLE
     Route: 042
     Dates: start: 20080714, end: 20080714
  9. THIOGUANINE [Concomitant]
     Indication: ACUTE LYMPHOCYTIC LEUKAEMIA
     Dosage: 60 MG/M2, QD
     Route: 048
     Dates: start: 20080714, end: 20080728
  10. MESNA [Concomitant]
     Dosage: 1000 MG/M2, SINGLE
     Route: 042
     Dates: start: 20080714, end: 20080714
  11. METHYLPREDNISOLONE [Concomitant]
     Indication: ACUTE LYMPHOCYTIC LEUKAEMIA
     Dosage: 3 MG, SINGLE
     Route: 037
     Dates: start: 20080716, end: 20080716
  12. ONDANSETRON [Concomitant]
     Indication: ACUTE LYMPHOCYTIC LEUKAEMIA
     Dosage: 2X5 MG/M2, UP TO A MAX OF 8 MG, QD
     Dates: start: 20080714, end: 20080729

REACTIONS (5)
  - DYSARTHRIA [None]
  - FACIAL PARESIS [None]
  - HEMIPARESIS [None]
  - HYPOAESTHESIA ORAL [None]
  - SWELLING FACE [None]
